FAERS Safety Report 25389556 (Version 2)
Quarter: 2025Q2

REPORT INFORMATION
  Report Type: Spontaneous
  Country: US (occurrence: US)
  Receive Date: 20250603
  Receipt Date: 20250605
  Transmission Date: 20250716
  Serious: Yes (Hospitalization)
  Sender: DOMPE FARMACEUTICI
  Company Number: US-FARMAPROD-202505-1750

PATIENT
  Sex: Female

DRUGS (14)
  1. OXERVATE [Suspect]
     Active Substance: CENEGERMIN-BKBJ
     Indication: Neurotrophic keratopathy
     Route: 047
     Dates: start: 20250415
  2. IVIZIA [Concomitant]
     Active Substance: POVIDONE
  3. AMOXICILLIN [Concomitant]
     Active Substance: AMOXICILLIN
  4. METHIMAZOLE [Concomitant]
     Active Substance: METHIMAZOLE
  5. FUROSEMIDE [Concomitant]
     Active Substance: FUROSEMIDE
  6. METOPROLOL SUCCINATE [Concomitant]
     Active Substance: METOPROLOL SUCCINATE
  7. PAROXETINE HYDROCHLORIDE [Concomitant]
     Active Substance: PAROXETINE HYDROCHLORIDE
  8. ATORVASTATIN CALCIUM [Concomitant]
     Active Substance: ATORVASTATIN CALCIUM
  9. AMLODIPINE BESYLATE [Concomitant]
     Active Substance: AMLODIPINE BESYLATE
  10. OXYBUTYNIN CHLORIDE [Concomitant]
     Active Substance: OXYBUTYNIN CHLORIDE
  11. XARELTO [Concomitant]
     Active Substance: RIVAROXABAN
  12. METAMUCIL [Concomitant]
     Active Substance: PLANTAGO SEED
  13. MAGNESIUM GLUCONATE [Concomitant]
     Active Substance: MAGNESIUM GLUCONATE
  14. COENZYME Q-10 [Concomitant]

REACTIONS (1)
  - Surgery [Unknown]
